FAERS Safety Report 23527381 (Version 5)
Quarter: 2024Q3

REPORT INFORMATION
  Report Type: Spontaneous
  Country: US (occurrence: US)
  Receive Date: 20240215
  Receipt Date: 20240711
  Transmission Date: 20241016
  Serious: Yes (Other)
  Sender: PFIZER
  Company Number: US-PFIZER INC-PV202400021073

PATIENT
  Age: 66 Year
  Sex: Female
  Weight: 49.887 kg

DRUGS (8)
  1. CIBINQO [Suspect]
     Active Substance: ABROCITINIB
     Dosage: 100 MG, DAILY
     Route: 048
  2. CIBINQO [Suspect]
     Active Substance: ABROCITINIB
     Dosage: 50 MG, 1X/DAY (NIGHTLY)
     Route: 048
  3. KLONOPIN [Concomitant]
     Active Substance: CLONAZEPAM
     Indication: Anxiety
     Dosage: 1 DF, DAILY (0.5)
  4. ALBUTEROL [Concomitant]
     Active Substance: ALBUTEROL
     Indication: Asthma
     Dosage: 90 UG, AS NEEDED (INHALER)
  5. DRISDOL [Concomitant]
     Active Substance: ERGOCALCIFEROL
     Dosage: 1.25 MG, WEEKLY
  6. LOSARTAN [Concomitant]
     Active Substance: LOSARTAN
     Indication: Hypertension
     Dosage: 25 MG, DAILY
  7. FLUOXETINE [Concomitant]
     Active Substance: FLUOXETINE HYDROCHLORIDE
     Indication: Depression
     Dosage: 20 MG, 1X/DAY (MORNING)
  8. ROSUVASTATIN [Concomitant]
     Active Substance: ROSUVASTATIN

REACTIONS (5)
  - Ankle fracture [Recovering/Resolving]
  - Fall [Recovering/Resolving]
  - Condition aggravated [Not Recovered/Not Resolved]
  - Wrong technique in product usage process [Unknown]
  - Pain [Not Recovered/Not Resolved]

NARRATIVE: CASE EVENT DATE: 20200101
